FAERS Safety Report 7949217-X (Version None)
Quarter: 2011Q4

REPORT INFORMATION
  Report Type: 
  Country: None (occurrence: None)
  Receive Date: 20111130
  Receipt Date: 20111125
  Transmission Date: 20120403
  Serious: Yes (Hospitalization)
  Sender: FDA-Public Use
  Company Number: FI-ROCHE-796301

PATIENT
  Sex: Female

DRUGS (7)
  1. ACTEMRA [Suspect]
     Indication: RHEUMATOID ARTHRITIS
     Route: 042
  2. IBUPROFEN [Suspect]
     Indication: ABDOMINAL PAIN
  3. PANACOD [Concomitant]
  4. METHOTREXATE [Concomitant]
     Indication: RHEUMATOID ARTHRITIS
  5. OMEPRAZOLE [Concomitant]
  6. PREDNISOLONE [Suspect]
     Indication: PRODUCT USED FOR UNKNOWN INDICATION
     Dosage: 5-15 MG
     Dates: start: 20100101, end: 20110401
  7. OXIKLORIN [Concomitant]
     Indication: RHEUMATOID ARTHRITIS

REACTIONS (5)
  - DUODENAL ULCER [None]
  - INFECTION [None]
  - ABDOMINAL DISCOMFORT [None]
  - VOMITING [None]
  - JEJUNAL PERFORATION [None]
